FAERS Safety Report 8241869-2 (Version None)
Quarter: 2012Q1

REPORT INFORMATION
  Report Type: 
  Country: None (occurrence: None)
  Receive Date: 20120328
  Receipt Date: 20120319
  Transmission Date: 20120608
  Serious: Yes (Other)
  Sender: FDA-Public Use
  Company Number: AU-BRISTOL-MYERS SQUIBB COMPANY-16463267

PATIENT

DRUGS (1)
  1. IPILIMUMAB [Suspect]

REACTIONS (1)
  - SUDDEN VISUAL LOSS [None]
